FAERS Safety Report 9205845 (Version 1)
Quarter: 2013Q2

REPORT INFORMATION
  Report Type: Spontaneous
  Country: GB (occurrence: GB)
  Receive Date: 20130403
  Receipt Date: 20130403
  Transmission Date: 20140414
  Serious: Yes (Other)
  Sender: FDA-Public Use
  Company Number: GB-BAYER-2013-041917

PATIENT
  Age: 41 Year
  Sex: Male

DRUGS (5)
  1. BETAFERON [Suspect]
     Indication: MULTIPLE SCLEROSIS
     Dosage: 8 MIU, QOD
     Route: 030
     Dates: start: 20091102
  2. BACLOFEN [Concomitant]
  3. DIAZEPAM [Concomitant]
  4. GABAPENTIN [Concomitant]
  5. PARACETAMOL [Concomitant]

REACTIONS (1)
  - Malignant melanoma [Not Recovered/Not Resolved]
